FAERS Safety Report 12413876 (Version 1)
Quarter: 2016Q2

REPORT INFORMATION
  Report Type: Not Available
  Country: JP (occurrence: JP)
  Receive Date: 20160527
  Receipt Date: 20160527
  Transmission Date: 20160815
  Serious: Yes (Hospitalization)
  Sender: FDA-Public Use
  Company Number: JP-ANIPHARMA-2016-JP-000004

PATIENT
  Age: 26 Year
  Sex: Male

DRUGS (4)
  1. CHLORPROMAZINE. [Suspect]
     Active Substance: CHLORPROMAZINE
     Dosage: UNKNOWN
     Route: 065
  2. PHENOBARBITAL. [Suspect]
     Active Substance: PHENOBARBITAL
     Dosage: UNKNOWN
     Route: 065
  3. PROMETHAZINE HCL (NON-SPECIFIC) [Suspect]
     Active Substance: PROMETHAZINE HYDROCHLORIDE
     Dosage: UNKNOWN
     Route: 065
  4. ETHYL ALCOHOL [Suspect]
     Active Substance: ALCOHOL
     Dosage: UNKNOWN
     Route: 048

REACTIONS (9)
  - Encephalopathy [Recovered/Resolved]
  - Pancreatitis [Recovered/Resolved]
  - Loss of consciousness [Recovered/Resolved]
  - Thrombotic thrombocytopenic purpura [Recovered/Resolved]
  - Status epilepticus [Recovered/Resolved]
  - Intentional overdose [Recovered/Resolved]
  - Renal failure [Recovered/Resolved]
  - Inflammation [None]
  - Hepatic function abnormal [None]
